FAERS Safety Report 11532918 (Version 1)
Quarter: 2015Q3

REPORT INFORMATION
  Report Type: Report from Study
  Country: US (occurrence: US)
  Receive Date: 20150921
  Receipt Date: 20150921
  Transmission Date: 20151125
  Serious: Yes (Other)
  Sender: FDA-Public Use
  Company Number: US-ALEXION PHARMACEUTICALS INC-A201503474

PATIENT

DRUGS (1)
  1. SOLIRIS [Suspect]
     Active Substance: ECULIZUMAB
     Indication: HAEMOLYTIC URAEMIC SYNDROME
     Dosage: 1200 MG, Q2W
     Route: 042
     Dates: start: 20120519

REACTIONS (9)
  - Limb injury [Unknown]
  - Device issue [Unknown]
  - Anxiety [Unknown]
  - Localised infection [Unknown]
  - Balance disorder [Unknown]
  - Agitation [Unknown]
  - Fall [Unknown]
  - Depression [Unknown]
  - Condition aggravated [Unknown]
